FAERS Safety Report 5656042-1 (Version None)
Quarter: 2008Q1

REPORT INFORMATION
  Report Type: 
  Country: None (occurrence: None)
  Receive Date: 20080307
  Receipt Date: 20080225
  Transmission Date: 20080703
  Serious: Yes (Other)
  Sender: FDA-Public Use
  Company Number: US-PFIZER INC-2008019084

PATIENT
  Sex: Male
  Weight: 113.4 kg

DRUGS (3)
  1. XANAX [Suspect]
     Route: 048
  2. LUNESTA [Suspect]
     Indication: INSOMNIA
     Route: 048
  3. LUNESTA [Suspect]
     Indication: ANXIETY

REACTIONS (6)
  - AGGRESSION [None]
  - AGITATION [None]
  - INTENTIONAL OVERDOSE [None]
  - LIVER FUNCTION TEST ABNORMAL [None]
  - SOMNOLENCE [None]
  - SUICIDE ATTEMPT [None]
